FAERS Safety Report 9311827 (Version 1)
Quarter: 2013Q1

REPORT INFORMATION
  Report Type: Spontaneous
  Country: US (occurrence: None)
  Receive Date: 20130212
  Receipt Date: 20130212
  Transmission Date: 20140127
  Serious: Yes (Other)
  Sender: FDA-Public Use
  Company Number: 2013P1000865

PATIENT
  Age: 22 Year
  Sex: Male
  Weight: 71.67 kg

DRUGS (2)
  1. MYORISAN [Suspect]
     Dates: start: 20121121
  2. MYORISAN 40 MG [Suspect]
     Indication: ACNE
     Route: 048
     Dates: start: 20121215

REACTIONS (3)
  - Acne [None]
  - Drug ineffective [None]
  - Dermatillomania [None]
